FAERS Safety Report 8972801 (Version 1)
Quarter: 2012Q4

REPORT INFORMATION
  Report Type: 
  Country: DE (occurrence: DE)
  Receive Date: 20121218
  Receipt Date: 20121218
  Transmission Date: 20130627
  Serious: Yes (Other)
  Sender: FDA-Public Use
  Company Number: DE-BAYER-2012-108234

PATIENT
  Age: 44 Year
  Sex: Female
  Weight: 64 kg

DRUGS (1)
  1. GADOVIST [Suspect]
     Indication: SCAN WITH CONTRAST
     Route: 042

REACTIONS (2)
  - Sensation of foreign body [Recovered/Resolved]
  - Erythema [Recovered/Resolved]
